FAERS Safety Report 13710954 (Version 1)
Quarter: 2017Q3

REPORT INFORMATION
  Report Type: Spontaneous
  Country: US (occurrence: US)
  Receive Date: 20170703
  Receipt Date: 20170703
  Transmission Date: 20171127
  Serious: Yes (Other)
  Sender: FDA-Public Use
  Company Number: US-SA-2017SA041060

PATIENT
  Age: 46 Year
  Sex: Male
  Weight: 86.18 kg

DRUGS (43)
  1. FABRAZYME [Suspect]
     Active Substance: AGALSIDASE BETA
     Indication: LIPIDOSIS
     Route: 041
  2. FABRAZYME [Suspect]
     Active Substance: AGALSIDASE BETA
     Indication: FABRY^S DISEASE
     Route: 041
  3. GABAPENTIN. [Concomitant]
     Active Substance: GABAPENTIN
  4. L-M-X [Concomitant]
     Indication: PREMEDICATION
     Dosage: PRIOR TO INFUSION
     Route: 061
     Dates: start: 20161220
  5. CYMBALTA [Concomitant]
     Active Substance: DULOXETINE HYDROCHLORIDE
     Route: 048
     Dates: start: 20151202
  6. PSYLLIUM [Concomitant]
     Active Substance: PLANTAGO SEED
     Route: 048
     Dates: start: 20170302
  7. HEPARIN [Concomitant]
     Active Substance: HEPARIN SODIUM
     Dosage: DOSE: 100 UNITS/ML AS DIRECTED
     Route: 042
     Dates: start: 20161220
  8. PARICALCITOL. [Concomitant]
     Active Substance: PARICALCITOL
     Route: 048
     Dates: start: 20161012
  9. OXYCODONE [Concomitant]
     Active Substance: OXYCODONE
     Dosage: 6 HRS AS NEEDED.
     Route: 048
     Dates: start: 20170506
  10. FABRAZYME [Suspect]
     Active Substance: AGALSIDASE BETA
     Indication: LIPIDOSIS
     Route: 041
  11. FABRAZYME [Suspect]
     Active Substance: AGALSIDASE BETA
     Indication: FABRY^S DISEASE
     Route: 041
  12. FABRAZYME [Suspect]
     Active Substance: AGALSIDASE BETA
     Indication: LIPIDOSIS
     Route: 041
  13. ASPIRIN. [Concomitant]
     Active Substance: ASPIRIN
     Route: 048
     Dates: start: 20170302
  14. DHEA [Concomitant]
     Active Substance: PRASTERONE
     Route: 048
     Dates: start: 20170413
  15. EPIPEN [Concomitant]
     Active Substance: EPINEPHRINE
     Indication: ANAPHYLACTIC REACTION
     Route: 030
     Dates: start: 20161220
  16. PSYLLIUM [Concomitant]
     Active Substance: PLANTAGO SEED
     Route: 048
     Dates: start: 20170413
  17. PROGRAF [Concomitant]
     Active Substance: TACROLIMUS\TACROLIMUS ANHYDROUS
     Route: 048
     Dates: start: 20170216
  18. FUROSEMIDE. [Concomitant]
     Active Substance: FUROSEMIDE
     Route: 048
     Dates: start: 20170413
  19. DIPHENHYDRAMINE. [Concomitant]
     Active Substance: DIPHENHYDRAMINE
     Indication: ANAPHYLACTIC REACTION
     Route: 042
     Dates: start: 20170524
  20. EPINEPHRINE. [Concomitant]
     Active Substance: EPINEPHRINE
     Indication: ANAPHYLACTIC REACTION
     Route: 030
     Dates: start: 20170524
  21. VITAMIN D3 [Concomitant]
     Active Substance: CHOLECALCIFEROL
     Route: 048
     Dates: start: 20170413
  22. FABRAZYME [Suspect]
     Active Substance: AGALSIDASE BETA
     Indication: FABRY^S DISEASE
     Route: 041
  23. FABRAZYME [Suspect]
     Active Substance: AGALSIDASE BETA
     Indication: FABRY^S DISEASE
     Route: 041
  24. FABRAZYME [Suspect]
     Active Substance: AGALSIDASE BETA
     Indication: LIPIDOSIS
     Route: 041
  25. ASPIRIN. [Concomitant]
     Active Substance: ASPIRIN
     Route: 048
     Dates: start: 20170513
  26. TESTOSTERONE. [Concomitant]
     Active Substance: TESTOSTERONE
     Dosage: DOSE:0.75 UNIT(S)
     Route: 030
     Dates: start: 20170216
  27. ARAVA [Concomitant]
     Active Substance: LEFLUNOMIDE
     Route: 048
     Dates: start: 20161031
  28. CYANOCOBALAMIN. [Concomitant]
     Active Substance: CYANOCOBALAMIN
     Route: 030
     Dates: start: 20161031
  29. BACTRIM [Concomitant]
     Active Substance: SULFAMETHOXAZOLE\TRIMETHOPRIM
     Route: 048
     Dates: start: 20170603
  30. HYDROCODONE W/ACETAMINOPHEN [Concomitant]
     Active Substance: ACETAMINOPHEN\HYDROCODONE BITARTRATE
     Dosage: EVERY 4 HRS AS NEEDED
     Route: 048
     Dates: start: 20170413
  31. MELATONIN [Concomitant]
     Active Substance: MELATONIN
     Route: 048
     Dates: start: 20170216
  32. GABAPENTIN. [Concomitant]
     Active Substance: GABAPENTIN
     Route: 048
     Dates: start: 20170302
  33. DHEA [Concomitant]
     Active Substance: PRASTERONE
     Route: 048
     Dates: start: 20170302
  34. NORMAL SALINE [Concomitant]
     Active Substance: SODIUM CHLORIDE
     Dosage: AS DIRECTED
     Route: 042
     Dates: start: 20161220
  35. LIOTHYRONINE [Concomitant]
     Active Substance: LIOTHYRONINE
     Route: 048
     Dates: start: 20160510
  36. FLUTICASONE. [Concomitant]
     Active Substance: FLUTICASONE
     Dosage: 1 SPRAY
     Route: 055
     Dates: start: 20170427
  37. TESTOSTERONE. [Concomitant]
     Active Substance: TESTOSTERONE
     Route: 042
     Dates: start: 20170525
  38. FUROSEMIDE. [Concomitant]
     Active Substance: FUROSEMIDE
     Route: 048
     Dates: start: 20170216
  39. DIPHENHYDRAMINE. [Concomitant]
     Active Substance: DIPHENHYDRAMINE
     Indication: ANAPHYLACTIC REACTION
     Route: 048
     Dates: start: 20161220
  40. MELATONIN [Concomitant]
     Active Substance: MELATONIN
     Dosage: AT BEDTIME AS NEEDED
     Route: 048
     Dates: start: 20170413
  41. CYANOCOBALAMIN. [Concomitant]
     Active Substance: CYANOCOBALAMIN
     Route: 030
     Dates: start: 20170525
  42. CALCITRIOL. [Concomitant]
     Active Substance: CALCITRIOL
     Route: 048
     Dates: start: 20160510
  43. VITAMIN B COMPLEX WITH C [Concomitant]
     Active Substance: ASCORBIC ACID\CALCIUM PANTOTHENATE\CYANOCOBALAMIN\NIACINAMIDE\PYRIDOXINE HYDROCHLORIDE\RIBOFLAVIN\THIAMINE MONONITRATE
     Route: 048
     Dates: start: 20170303

REACTIONS (7)
  - Dizziness [Unknown]
  - Loss of consciousness [Unknown]
  - Fall [Unknown]
  - Loss of personal independence in daily activities [Not Recovered/Not Resolved]
  - Joint injury [Unknown]
  - Back pain [Not Recovered/Not Resolved]
  - Hypotension [Unknown]

NARRATIVE: CASE EVENT DATE: 2017
